FAERS Safety Report 14451858 (Version 1)
Quarter: 2018Q1

REPORT INFORMATION
  Report Type: Spontaneous
  Country: US (occurrence: US)
  Receive Date: 20180126
  Receipt Date: 20180126
  Transmission Date: 20180509
  Serious: No
  Sender: FDA-Public Use
  Company Number: None

PATIENT
  Age: 27 Year
  Sex: Male

DRUGS (1)
  1. SUBOXONE [Suspect]
     Active Substance: BUPRENORPHINE HYDROCHLORIDE\NALOXONE HYDROCHLORIDE
     Indication: DRUG USE DISORDER
     Dosage: TWO SUBOXONE 2MG/0.5MG DAILY SUBLINGUAL
     Route: 060

REACTIONS (4)
  - Hypersensitivity [None]
  - Nausea [None]
  - Drug ineffective [None]
  - Vomiting [None]
